FAERS Safety Report 7799159-8 (Version None)
Quarter: 2011Q4

REPORT INFORMATION
  Report Type: 
  Country: None (occurrence: None)
  Receive Date: 20111006
  Receipt Date: 20110929
  Transmission Date: 20120403
  Serious: Yes (Other)
  Sender: FDA-Public Use
  Company Number: US-PFIZER INC-2011233015

PATIENT
  Sex: Female
  Weight: 61.224 kg

DRUGS (2)
  1. LYRICA [Suspect]
     Indication: HYPOAESTHESIA
     Dosage: 75 MG, 1X/DAY
     Route: 048
     Dates: start: 20110912, end: 20110912
  2. METFORMIN [Concomitant]
     Dosage: UNK

REACTIONS (4)
  - PALPITATIONS [None]
  - NAUSEA [None]
  - FEELING ABNORMAL [None]
  - DIZZINESS [None]
